FAERS Safety Report 16191950 (Version 1)
Quarter: 2019Q2

REPORT INFORMATION
  Report Type: Spontaneous
  Country: GB (occurrence: GB)
  Receive Date: 20190412
  Receipt Date: 20190412
  Transmission Date: 20190711
  Serious: Yes (Hospitalization, Other)
  Sender: FDA-Public Use
  Company Number: GB-BRISTOL-MYERS SQUIBB COMPANY-BMS-2018-097580

PATIENT
  Sex: Male

DRUGS (2)
  1. OPDIVO [Suspect]
     Active Substance: NIVOLUMAB
     Indication: MALIGNANT MELANOMA
     Dosage: 100 MILLIGRAM
     Route: 042
     Dates: start: 20180928, end: 20180928
  2. YERVOY [Suspect]
     Active Substance: IPILIMUMAB
     Indication: MALIGNANT MELANOMA
     Dosage: 315 MILLIGRAM
     Route: 042
     Dates: start: 20180928, end: 20180928

REACTIONS (7)
  - Hepatitis [Unknown]
  - Pneumonitis [Unknown]
  - Hypoxia [Unknown]
  - Pharyngeal inflammation [Unknown]
  - Liver function test abnormal [Unknown]
  - Oesophagitis [Unknown]
  - Stevens-Johnson syndrome [Unknown]

NARRATIVE: CASE EVENT DATE: 20181011
